FAERS Safety Report 5931471-7 (Version None)
Quarter: 2008Q4

REPORT INFORMATION
  Report Type: 
  Country: None (occurrence: None)
  Receive Date: 20081027
  Receipt Date: 20081020
  Transmission Date: 20090506
  Serious: Yes (Life-Threatening, Other)
  Sender: FDA-Public Use
  Company Number: DE-JNJFOC-20081004202

PATIENT
  Age: 19 Year
  Sex: Female
  Weight: 50 kg

DRUGS (7)
  1. REMICADE [Suspect]
     Route: 042
  2. REMICADE [Suspect]
     Route: 042
  3. REMICADE [Suspect]
     Indication: CROHN'S DISEASE
     Route: 042
  4. AZATHIOPRIN [Concomitant]
     Indication: CROHN'S DISEASE
  5. MESALAMINE [Concomitant]
  6. MARCUMAR [Concomitant]
     Indication: THROMBOSIS
  7. PREDNISONE TAB [Concomitant]
     Indication: PREMEDICATION

REACTIONS (7)
  - DYSPNOEA [None]
  - HYPOTENSION [None]
  - INFUSION RELATED REACTION [None]
  - PALPITATIONS [None]
  - TACHYCARDIA [None]
  - THROMBOSIS [None]
  - URTICARIA [None]
